FAERS Safety Report 21339169 (Version 3)
Quarter: 2022Q4

REPORT INFORMATION
  Report Type: Spontaneous
  Country: IN (occurrence: IN)
  Receive Date: 20220915
  Receipt Date: 20221013
  Transmission Date: 20230112
  Serious: Yes (Other)
  Sender: FDA-Public Use
  Company Number: IN-PFIZER INC-PV202200062596

PATIENT
  Age: 76 Year
  Sex: Male
  Weight: 48.9 kg

DRUGS (1)
  1. DACOMITINIB [Suspect]
     Active Substance: DACOMITINIB
     Indication: Non-small cell lung cancer metastatic
     Dosage: 30 MG, 1X/DAY
     Route: 048
     Dates: start: 20220804

REACTIONS (1)
  - Blood pressure increased [Unknown]
